FAERS Safety Report 8871683 (Version 1)
Quarter: 2012Q4

REPORT INFORMATION
  Report Type: 
  Country: US (occurrence: US)
  Receive Date: 20121030
  Receipt Date: 20121030
  Transmission Date: 20130627
  Serious: No
  Sender: FDA-Public Use
  Company Number: US-009507513-1210USA007654

PATIENT
  Age: 67 Year
  Sex: Female

DRUGS (3)
  1. NASONEX [Suspect]
     Dosage: 2 sprays a day
     Route: 055
  2. SYNTHROID [Concomitant]
     Dosage: UNK
  3. AZILECT [Concomitant]
     Dosage: UNK

REACTIONS (2)
  - Eye pain [Recovered/Resolved]
  - Accidental exposure to product [Unknown]
